FAERS Safety Report 22319529 (Version 1)
Quarter: 2023Q2

REPORT INFORMATION
  Report Type: Report from Study
  Country: DE (occurrence: DE)
  Receive Date: 20230515
  Receipt Date: 20230515
  Transmission Date: 20230722
  Serious: Yes (Hospitalization)
  Sender: FDA-Public Use
  Company Number: DE-ROCHE-3339208

PATIENT
  Age: 65 Year
  Sex: Female

DRUGS (2)
  1. METHOTREXATE [Suspect]
     Active Substance: METHOTREXATE
     Indication: Rheumatoid arthritis
     Dosage: 25 MILLIGRAM
     Route: 065
  2. TOCILIZUMAB [Suspect]
     Active Substance: TOCILIZUMAB
     Indication: Rheumatoid arthritis
     Dosage: 800 MILLIGRAM
     Route: 065
     Dates: start: 201804

REACTIONS (10)
  - Hypokalaemia [Unknown]
  - Vitreous floaters [Unknown]
  - Cardiac failure [Unknown]
  - Acute kidney injury [Unknown]
  - Pericardial effusion [Unknown]
  - Septic arthritis staphylococcal [Unknown]
  - Endocarditis bacterial [Unknown]
  - Pleural effusion [Unknown]
  - Arthralgia [Unknown]
  - Diarrhoea [Unknown]

NARRATIVE: CASE EVENT DATE: 20220627
